FAERS Safety Report 22736098 (Version 16)
Quarter: 2025Q3

REPORT INFORMATION
  Report Type: Spontaneous
  Country: AR (occurrence: AR)
  Receive Date: 20230721
  Receipt Date: 20250825
  Transmission Date: 20251020
  Serious: Yes (Other)
  Sender: MYLAN
  Company Number: AR-MYLANLABS-2023M1075457

PATIENT
  Age: 17 Year
  Sex: Male

DRUGS (1)
  1. CLOZAPINE [Suspect]
     Active Substance: CLOZAPINE
     Indication: Product used for unknown indication

REACTIONS (4)
  - Neutropenia [Recovered/Resolved]
  - Monocyte count increased [Recovered/Resolved]
  - Leukocytosis [Recovered/Resolved]
  - Off label use [Unknown]

NARRATIVE: CASE EVENT DATE: 20230601
